FAERS Safety Report 10748803 (Version 2)
Quarter: 2015Q2

REPORT INFORMATION
  Report Type: Report from Study
  Country: US (occurrence: US)
  Receive Date: 20150129
  Receipt Date: 20150520
  Transmission Date: 20150821
  Serious: Yes (Hospitalization, Other)
  Sender: FDA-Public Use
  Company Number: US-SA-2015SA008484

PATIENT
  Age: 67 Year
  Sex: Female

DRUGS (1)
  1. AUBAGIO [Suspect]
     Active Substance: TERIFLUNOMIDE
     Indication: MULTIPLE SCLEROSIS
     Route: 048
     Dates: start: 20141126, end: 201504

REACTIONS (5)
  - Multiple sclerosis relapse [Unknown]
  - Fine motor delay [Unknown]
  - Tremor [Unknown]
  - Walking aid user [Not Recovered/Not Resolved]
  - Condition aggravated [Unknown]
